FAERS Safety Report 4456354-3 (Version None)
Quarter: 2004Q3

REPORT INFORMATION
  Report Type: 
  Country: None (occurrence: None)
  Receive Date: 20040917
  Receipt Date: 20040903
  Transmission Date: 20050211
  Serious: Yes (Life-Threatening)
  Sender: FDA-Public Use
  Company Number: 2004SE04747

PATIENT
  Age: 65 Year
  Sex: Female

DRUGS (12)
  1. BLOPRESS [Suspect]
     Indication: HYPERTENSION
     Dosage: 8 MG QD PO
     Route: 048
     Dates: start: 20040716, end: 20040722
  2. LOXONIN [Suspect]
     Indication: POST PROCEDURAL PAIN
     Dosage: 60 MG PRN PO
     Route: 048
     Dates: start: 20040722, end: 20040722
  3. BASEN [Concomitant]
  4. AMLODIPINME BESILATE [Concomitant]
  5. BACLOFEN [Concomitant]
  6. BENIDIPINE HYDROCHLORIDE [Concomitant]
  7. TEMOCAPRIL HYDROCHLORIDE [Concomitant]
  8. ZOLPIDEM TARTRATE [Concomitant]
  9. MEXILETINE HYDROCHLORIDE [Concomitant]
  10. MECOBALAMIN [Concomitant]
  11. GLICLAZIDE [Concomitant]
  12. CARBAMAZEPINE [Concomitant]

REACTIONS (3)
  - GENERALISED ERYTHEMA [None]
  - POST PROCEDURAL PAIN [None]
  - SHOCK [None]
